FAERS Safety Report 9618914 (Version 11)
Quarter: 2016Q1

REPORT INFORMATION
  Report Type: Report from Study
  Country: US (occurrence: US)
  Receive Date: 20131014
  Receipt Date: 20160224
  Transmission Date: 20160526
  Serious: Yes (Death, Hospitalization, Other)
  Sender: FDA-Public Use
  Company Number: US-SA-2013SA098016

PATIENT
  Age: 52 Year
  Sex: Female

DRUGS (2)
  1. AUBAGIO [Suspect]
     Active Substance: TERIFLUNOMIDE
     Indication: MULTIPLE SCLEROSIS
     Route: 048
     Dates: start: 2013
  2. AUBAGIO [Suspect]
     Active Substance: TERIFLUNOMIDE
     Indication: MULTIPLE SCLEROSIS
     Route: 048
     Dates: start: 20130702, end: 20150930

REACTIONS (22)
  - Chest discomfort [Not Recovered/Not Resolved]
  - Dehydration [Not Recovered/Not Resolved]
  - Diarrhoea [Recovering/Resolving]
  - Muscle spasms [Unknown]
  - Dizziness [Unknown]
  - Back pain [Unknown]
  - Drug dose omission [Unknown]
  - Myocardial infarction [Fatal]
  - Splenic neoplasm malignancy unspecified [Unknown]
  - Kidney infection [Unknown]
  - Throat cancer [Not Recovered/Not Resolved]
  - Vomiting [Recovering/Resolving]
  - Hypokalaemia [Not Recovered/Not Resolved]
  - Cerebrovascular accident [Not Recovered/Not Resolved]
  - Stress [Not Recovered/Not Resolved]
  - Non-Hodgkin^s lymphoma [Unknown]
  - Paraesthesia [Not Recovered/Not Resolved]
  - Hypoaesthesia [Not Recovered/Not Resolved]
  - Streptococcal infection [Unknown]
  - Nausea [Recovering/Resolving]
  - Muscular weakness [Not Recovered/Not Resolved]
  - Abdominal tenderness [Unknown]

NARRATIVE: CASE EVENT DATE: 20150929
